FAERS Safety Report 24908476 (Version 2)
Quarter: 2025Q3

REPORT INFORMATION
  Report Type: Spontaneous
  Country: US (occurrence: US)
  Receive Date: 20250131
  Receipt Date: 20250811
  Transmission Date: 20251021
  Serious: No
  Sender: SUNOVION
  Company Number: US-SMPA-2025SPA000728AA

PATIENT
  Age: 76 Year
  Sex: Male

DRUGS (1)
  1. ORGOVYX [Suspect]
     Active Substance: RELUGOLIX
     Indication: Prostate cancer
     Dosage: 120 MG, QD (AROUND THE SAME TIME EACH DAY)
     Route: 048

REACTIONS (2)
  - Blood testosterone decreased [Unknown]
  - Therapy interrupted [Unknown]
